FAERS Safety Report 13802353 (Version 3)
Quarter: 2017Q3

REPORT INFORMATION
  Report Type: Report from Study
  Country: US (occurrence: US)
  Receive Date: 20170727
  Receipt Date: 20170828
  Transmission Date: 20171127
  Serious: Yes (Hospitalization)
  Sender: FDA-Public Use
  Company Number: US-009507513-1707USA010385

PATIENT
  Age: 71 Year

DRUGS (2)
  1. DARATUMUMAB [Suspect]
     Active Substance: DARATUMUMAB
     Indication: PLASMA CELL MYELOMA
     Dosage: 1349.92, UNKNOWN
     Route: 042
     Dates: start: 20160211
  2. DECADRON [Suspect]
     Active Substance: DEXAMETHASONE
     Indication: PLASMA CELL MYELOMA
     Dosage: 20 MG WEEKLY FOR 8 WEEKS THEN EVERY OTHER WEEK 9-24
     Route: 042
     Dates: start: 20160317

REACTIONS (8)
  - Influenza [Unknown]
  - Oropharyngeal pain [Unknown]
  - Pyrexia [Unknown]
  - Asthenia [Unknown]
  - Lethargy [Recovered/Resolved]
  - Malaise [Unknown]
  - Neck pain [Recovered/Resolved]
  - Diarrhoea [Unknown]

NARRATIVE: CASE EVENT DATE: 20160413
